FAERS Safety Report 21640333 (Version 1)
Quarter: 2022Q4

REPORT INFORMATION
  Report Type: Spontaneous
  Country: BE (occurrence: BE)
  Receive Date: 20221124
  Receipt Date: 20221124
  Transmission Date: 20230112
  Serious: Yes (Death, Other)
  Sender: FDA-Public Use
  Company Number: BE-009507513-2211BEL005928

PATIENT
  Sex: Female

DRUGS (6)
  1. TEMODAL [Suspect]
     Active Substance: TEMOZOLOMIDE
     Indication: Glioblastoma
     Dosage: UNK
     Route: 048
     Dates: start: 2016
  2. TEMODAL [Suspect]
     Active Substance: TEMOZOLOMIDE
     Indication: Glioblastoma
     Dosage: 12 CYCLES
     Route: 048
     Dates: start: 2020, end: 2021
  3. TEMODAL [Suspect]
     Active Substance: TEMOZOLOMIDE
     Indication: Glioblastoma
     Dosage: 3 CYCLES
     Route: 048
     Dates: start: 202203
  4. ZIRABEV [Suspect]
     Active Substance: BEVACIZUMAB-BVZR
     Indication: Glioblastoma
     Dosage: 1200 MILLIGRAM
  5. LOMUSTINE\PROCARBAZINE\VINCRISTINE [Suspect]
     Active Substance: LOMUSTINE\PROCARBAZINE\VINCRISTINE
     Indication: Glioblastoma
     Dosage: UNK
  6. LOMUSTINE\PROCARBAZINE\VINCRISTINE [Suspect]
     Active Substance: LOMUSTINE\PROCARBAZINE\VINCRISTINE
     Dosage: 2 CYCLES
     Dates: start: 202208

REACTIONS (6)
  - Death [Fatal]
  - Malignant neoplasm progression [Unknown]
  - Glioblastoma [Unknown]
  - Recurrent cancer [Unknown]
  - Glioblastoma [Unknown]
  - Recurrent cancer [Unknown]

NARRATIVE: CASE EVENT DATE: 20200101
